FAERS Safety Report 25061372 (Version 1)
Quarter: 2025Q1

REPORT INFORMATION
  Report Type: Spontaneous
  Country: IT (occurrence: IT)
  Receive Date: 20250311
  Receipt Date: 20250311
  Transmission Date: 20250409
  Serious: Yes (Hospitalization, Other)
  Sender: NOVITIUM PHARMA
  Company Number: IT-NOVITIUMPHARMA-2025ITNVP00618

PATIENT
  Age: 16 Year
  Sex: Male

DRUGS (9)
  1. PREDNISONE [Suspect]
     Active Substance: PREDNISONE
     Indication: Focal segmental glomerulosclerosis
  2. TACROLIMUS [Concomitant]
     Active Substance: TACROLIMUS
     Indication: Focal segmental glomerulosclerosis
  3. RITUXIMAB [Concomitant]
     Active Substance: RITUXIMAB
     Indication: Focal segmental glomerulosclerosis
  4. THYMOCYTE IMMUNE GLOBULIN NOS [Concomitant]
     Active Substance: THYMOCYTE IMMUNE GLOBULIN NOS
     Indication: Focal segmental glomerulosclerosis
  5. METHYLPREDNISOLONE [Concomitant]
     Active Substance: METHYLPREDNISOLONE
     Indication: Focal segmental glomerulosclerosis
  6. MYCOPHENOLATE MOFETIL [Concomitant]
     Active Substance: MYCOPHENOLATE MOFETIL
     Indication: Focal segmental glomerulosclerosis
  7. ANAKINRA [Concomitant]
     Active Substance: ANAKINRA
     Indication: Focal segmental glomerulosclerosis
  8. OBINUTUZUMAB [Concomitant]
     Active Substance: OBINUTUZUMAB
     Indication: Focal segmental glomerulosclerosis
  9. DARATUMUMAB [Concomitant]
     Active Substance: DARATUMUMAB
     Indication: Focal segmental glomerulosclerosis

REACTIONS (3)
  - Cholecystitis acute [Unknown]
  - Oral infection [Unknown]
  - Drug ineffective [Unknown]
